FAERS Safety Report 4766722-8 (Version None)
Quarter: 2005Q3

REPORT INFORMATION
  Report Type: 
  Country: None (occurrence: None)
  Receive Date: 20050908
  Receipt Date: 20050831
  Transmission Date: 20060218
  Serious: Yes (Other)
  Sender: FDA-Public Use
  Company Number: 430023M05USA

PATIENT
  Age: 52 Year
  Sex: Male
  Weight: 68.0396 kg

DRUGS (2)
  1. NOVANTRONE [Suspect]
     Indication: MULTIPLE SCLEROSIS
     Dosage: 6 MG/M2, 1 IN 3 MONTHS, INTRAVENOUS; 12 MG/M2, 1 IN 3 MONTHS, INTRAVENOUS
     Route: 042
     Dates: start: 20020114, end: 20030316
  2. NOVANTRONE [Suspect]
     Indication: MULTIPLE SCLEROSIS
     Dosage: 6 MG/M2, 1 IN 3 MONTHS, INTRAVENOUS; 12 MG/M2, 1 IN 3 MONTHS, INTRAVENOUS
     Route: 042
     Dates: start: 20010103

REACTIONS (2)
  - CARDIOMYOPATHY [None]
  - EJECTION FRACTION DECREASED [None]
